FAERS Safety Report 17225801 (Version 2)
Quarter: 2020Q1

REPORT INFORMATION
  Report Type: Spontaneous
  Country: JP (occurrence: JP)
  Receive Date: 20200102
  Receipt Date: 20200221
  Transmission Date: 20200409
  Serious: Yes (Hospitalization, Other)
  Sender: FDA-Public Use
  Company Number: JP-BRACCO-2019JP06905

PATIENT
  Age: 72 Year
  Sex: Female

DRUGS (4)
  1. METOPROLOL TARTRATE. [Concomitant]
     Active Substance: METOPROLOL TARTRATE
     Dosage: 20 MG
     Route: 048
     Dates: start: 20191017, end: 20191017
  2. IOPAMIRON [Suspect]
     Active Substance: IOPAMIDOL
     Indication: ELECTROCARDIOGRAM ST SEGMENT ABNORMAL
  3. IOPAMIRON [Suspect]
     Active Substance: IOPAMIDOL
     Indication: COMPUTERISED TOMOGRAM CORONARY ARTERY
     Dosage: 43 ML, ONCE
     Route: 040
     Dates: start: 20191017, end: 20191017
  4. METOPROLOL TARTRATE. [Concomitant]
     Active Substance: METOPROLOL TARTRATE
     Indication: HEART RATE DECREASED
     Dosage: UNK
     Dates: start: 20191017, end: 20191017

REACTIONS (2)
  - Pneumonia [Recovered/Resolved]
  - Vomiting [Recovered/Resolved]

NARRATIVE: CASE EVENT DATE: 20191017
